FAERS Safety Report 4289974-X (Version None)
Quarter: 2004Q1

REPORT INFORMATION
  Report Type: 
  Country: None (occurrence: None)
  Receive Date: 20040209
  Receipt Date: 20040127
  Transmission Date: 20041129
  Serious: No
  Sender: FDA-Public Use
  Company Number: 04P-163-0249027-00

PATIENT
  Age: 4 Month
  Sex: Male

DRUGS (9)
  1. KALETRA SOFT GELATIN (KALETRA) (LOPINAVIR/RITONAVIR) (LOPINAVIR/RITONA [Suspect]
     Indication: HIV INFECTION
     Dates: start: 20031204, end: 20031229
  2. STAVUDINE [Suspect]
     Indication: HIV INFECTION
     Dates: start: 20031204, end: 20031229
  3. LAMIVUDINE [Suspect]
     Indication: HIV INFECTION
     Dates: start: 20031204, end: 20031229
  4. CISAPRIDE [Concomitant]
  5. ATOVAQUONE [Concomitant]
  6. EPOETIN ALFA [Concomitant]
  7. CEPHALEXIN MONOHYDRATE [Concomitant]
  8. DIMETICONE, ACTIVATED [Concomitant]
  9. MUPIROCIN [Concomitant]

REACTIONS (2)
  - ANAEMIA [None]
  - BLOOD POTASSIUM INCREASED [None]
